FAERS Safety Report 8061834-8 (Version None)
Quarter: 2012Q1

REPORT INFORMATION
  Report Type: 
  Country: None (occurrence: None)
  Receive Date: 20120123
  Receipt Date: 20120119
  Transmission Date: 20120608
  Serious: No
  Sender: FDA-Public Use
  Company Number: US-PFIZER INC-2012016220

PATIENT
  Sex: Female
  Weight: 113.37 kg

DRUGS (11)
  1. OPANA [Concomitant]
     Dosage: UNK
  2. VYTORIN [Concomitant]
     Indication: BLOOD CHOLESTEROL ABNORMAL
     Dosage: UNK
  3. ELAVIL [Concomitant]
     Indication: SLEEP DISORDER
     Dosage: UNK
  4. OXYCONTIN [Concomitant]
     Dosage: UNK
  5. TEMAZEPAM [Concomitant]
     Indication: SLEEP DISORDER
     Dosage: UNK
  6. ATIVAN [Concomitant]
     Dosage: UNK
  7. CHANTIX [Suspect]
     Indication: SMOKING CESSATION THERAPY
     Dosage: 0.5 MG, 1X/DAY
     Route: 048
     Dates: start: 20110301, end: 20110301
  8. XANAX [Concomitant]
     Dosage: UNK
  9. IMITREX [Concomitant]
     Dosage: UNK
  10. CHANTIX [Suspect]
     Dosage: UNK
     Route: 048
     Dates: start: 20110301, end: 20110401
  11. PROTONIX [Concomitant]
     Dosage: UNK

REACTIONS (3)
  - PAROSMIA [None]
  - FLATULENCE [None]
  - BLOOD SODIUM DECREASED [None]
